FAERS Safety Report 6066082-9 (Version None)
Quarter: 2009Q1

REPORT INFORMATION
  Report Type: 
  Country: None (occurrence: None)
  Receive Date: 20090205
  Receipt Date: 20090202
  Transmission Date: 20090719
  Serious: Yes (Hospitalization)
  Sender: FDA-Public Use
  Company Number: US-BAYER-200812676BCC

PATIENT
  Age: 54 Year
  Sex: Female
  Weight: 79 kg

DRUGS (6)
  1. ALEVE [Suspect]
     Indication: ARTHRITIS
     Dosage: TOTAL DAILY DOSE: 440 MG  UNIT DOSE: 220 MG
     Route: 048
     Dates: start: 20080622, end: 20080625
  2. FLONASE [Concomitant]
  3. QUINAPRIL [Concomitant]
  4. PAXIL [Concomitant]
  5. PREMARIN [Concomitant]
  6. AMITRIPTYLINE HCL [Concomitant]
     Indication: SLEEP DISORDER

REACTIONS (35)
  - ABDOMINAL DISTENSION [None]
  - ABDOMINAL PAIN [None]
  - ANAPHYLACTIC SHOCK [None]
  - ANXIETY [None]
  - BLOOD PRESSURE DECREASED [None]
  - CONFUSIONAL STATE [None]
  - COUGH [None]
  - DEATH [None]
  - DIARRHOEA [None]
  - DIZZINESS [None]
  - DYSPHAGIA [None]
  - DYSPHONIA [None]
  - DYSPNOEA [None]
  - EYELID OEDEMA [None]
  - FEAR [None]
  - FEELING HOT [None]
  - GENERALISED ERYTHEMA [None]
  - HEART RATE INCREASED [None]
  - HEART RATE IRREGULAR [None]
  - LIP SWELLING [None]
  - LOSS OF CONSCIOUSNESS [None]
  - NASAL CONGESTION [None]
  - NAUSEA [None]
  - OEDEMA PERIPHERAL [None]
  - PARAESTHESIA [None]
  - PHARYNGEAL OEDEMA [None]
  - PRURITUS [None]
  - RASH [None]
  - SNEEZING [None]
  - SWELLING FACE [None]
  - SWOLLEN TONGUE [None]
  - SYNCOPE [None]
  - THROAT TIGHTNESS [None]
  - URTICARIA [None]
  - VOMITING [None]
